FAERS Safety Report 16164922 (Version 2)
Quarter: 2019Q2

REPORT INFORMATION
  Report Type: Report from Study
  Country: CA (occurrence: CA)
  Receive Date: 20190405
  Receipt Date: 20190410
  Transmission Date: 20190711
  Serious: Yes (Death, Hospitalization)
  Sender: FDA-Public Use
  Company Number: CA-HLSUS-2019-CA-000398

PATIENT
  Age: 69 Year
  Sex: Female

DRUGS (1)
  1. CLOZARIL [Suspect]
     Active Substance: CLOZAPINE
     Dosage: 250 MG DAILY
     Route: 048
     Dates: start: 20090224

REACTIONS (3)
  - Hip fracture [Unknown]
  - Dehydration [Fatal]
  - Hypophagia [Fatal]

NARRATIVE: CASE EVENT DATE: 20190125
